FAERS Safety Report 20482030 (Version 1)
Quarter: 2022Q1

REPORT INFORMATION
  Report Type: Report from Study
  Country: US (occurrence: US)
  Receive Date: 20220216
  Receipt Date: 20220216
  Transmission Date: 20220423
  Serious: Yes (Other)
  Sender: FDA-Public Use
  Company Number: US-JAZZ-2021-US-019189

PATIENT
  Sex: Female

DRUGS (2)
  1. ZEPZELCA [Suspect]
     Active Substance: LURBINECTEDIN
     Dosage: FREQUENCY: UNK
  2. ZEPZELCA [Suspect]
     Active Substance: LURBINECTEDIN
     Dosage: FREQUENCY: UNK

REACTIONS (12)
  - Neuropathy peripheral [Unknown]
  - Feeling hot [Unknown]
  - Dry skin [Unknown]
  - Amnesia [Unknown]
  - Tenderness [Unknown]
  - Erythema [Unknown]
  - Nausea [Unknown]
  - Vomiting [Unknown]
  - Diarrhoea [Unknown]
  - Fatigue [Unknown]
  - Bone pain [Unknown]
  - Paraesthesia [Unknown]
